FAERS Safety Report 7009368-3 (Version None)
Quarter: 2010Q3

REPORT INFORMATION
  Report Type: 
  Country: None (occurrence: None)
  Receive Date: 20100921
  Receipt Date: 20100910
  Transmission Date: 20110219
  Serious: Yes (Hospitalization, Other)
  Sender: FDA-Public Use
  Company Number: DSU-2010-04259

PATIENT
  Age: 65 Year
  Sex: Male
  Weight: 91.6266 kg

DRUGS (9)
  1. BENICAR HCT [Suspect]
     Indication: HYPERTENSION
     Dosage: 20/12.5MG (QD), PER ORAL
     Route: 048
     Dates: start: 20100410
  2. PROCARDIA XL (NIFEDIPINE) (NIFEDIPINE) [Concomitant]
  3. LASIX [Concomitant]
  4. AMIODARONE HCL [Concomitant]
  5. SIMVASTATIN [Concomitant]
  6. XANAX [Concomitant]
  7. OXYGEN (OXYGEN) (OXYGEN) [Concomitant]
  8. ADVAIR (FLUTICASONE PROPIONATE, SALMETEROL XINAFOATE) (FLUTICASONE PRO [Concomitant]
  9. DUONEB (IPRATROPIUM BROMIDE, SALBUTAMOL SULFATE) (NEBULISER SOLUIITION [Concomitant]

REACTIONS (7)
  - DEHYDRATION [None]
  - DIARRHOEA [None]
  - ERUCTATION [None]
  - HYPOTENSION [None]
  - PAROSMIA [None]
  - RENAL FAILURE [None]
  - WEIGHT DECREASED [None]
